FAERS Safety Report 19238859 (Version 2)
Quarter: 2021Q2

REPORT INFORMATION
  Report Type: Spontaneous
  Country: FR (occurrence: FR)
  Receive Date: 20210510
  Receipt Date: 20210512
  Transmission Date: 20210717
  Serious: Yes (Other)
  Sender: FDA-Public Use
  Company Number: FR-SA-2021SA145913

PATIENT
  Age: 68 Year
  Sex: Male

DRUGS (1)
  1. LANTUS [Suspect]
     Active Substance: INSULIN GLARGINE
     Indication: DIABETES MELLITUS
     Dosage: 52 IU, QD (IN THE EVENING)
     Route: 065

REACTIONS (9)
  - Respiratory failure [Unknown]
  - HIV infection [Unknown]
  - Lack of injection site rotation [Unknown]
  - Drug ineffective [Unknown]
  - Injection site pain [Unknown]
  - Diabetes mellitus [Unknown]
  - Hyperglycaemia [Unknown]
  - Neoplasm malignant [Unknown]
  - Bronchitis chronic [Unknown]
